FAERS Safety Report 4585482-7 (Version None)
Quarter: 2005Q1

REPORT INFORMATION
  Report Type: 
  Country: None (occurrence: None)
  Receive Date: 20050214
  Receipt Date: 20050204
  Transmission Date: 20050727
  Serious: Yes (Life-Threatening, Hospitalization, Other)
  Sender: FDA-Public Use
  Company Number: 2005-02-0185

PATIENT
  Age: 24 Year
  Sex: Female
  Weight: 70 kg

DRUGS (3)
  1. TEMODAL [Suspect]
     Indication: ASTROCYTOMA
     Dosage: 340 MG QD ORAL
     Route: 048
     Dates: start: 20050111, end: 20050115
  2. DECORTIN [Concomitant]
  3. PANTOZOL (PANTOPRAZOLE) [Concomitant]

REACTIONS (7)
  - CONVULSION [None]
  - GAZE PALSY [None]
  - PETECHIAE [None]
  - SEPSIS [None]
  - SOPOR [None]
  - SUBDURAL HAEMATOMA [None]
  - THROMBOCYTOPENIA [None]
